FAERS Safety Report 6716869-1 (Version None)
Quarter: 2010Q2

REPORT INFORMATION
  Report Type: 
  Country: None (occurrence: None)
  Receive Date: 20100510
  Receipt Date: 20100505
  Transmission Date: 20101027
  Serious: Yes (Death)
  Sender: FDA-Public Use
  Company Number: US-ASTRAZENECA-2009UW15655

PATIENT
  Age: 24 Year
  Sex: Female
  Weight: 162 kg

DRUGS (3)
  1. SEROQUEL [Suspect]
     Route: 048
     Dates: start: 20090505
  2. SEROQUEL [Suspect]
     Route: 048
     Dates: start: 20090505
  3. CELEXA [Suspect]

REACTIONS (3)
  - ABNORMAL BEHAVIOUR [None]
  - DECREASED INTEREST [None]
  - OVERDOSE [None]
